FAERS Safety Report 21935141 (Version 2)
Quarter: 2023Q1

REPORT INFORMATION
  Report Type: Spontaneous
  Country: JP (occurrence: JP)
  Receive Date: 20230201
  Receipt Date: 20230213
  Transmission Date: 20230418
  Serious: Yes (Life-Threatening, Hospitalization, Other)
  Sender: FDA-Public Use
  Company Number: None

PATIENT
  Age: 8 Decade
  Sex: Male

DRUGS (17)
  1. ETOPOSIDE [Suspect]
     Active Substance: ETOPOSIDE
     Indication: Metastases to lymph nodes
     Dosage: 80 MILLIGRAM/SQ. METER, CYCLICAL, 1ST CYCLE
     Route: 065
     Dates: start: 201811
  2. ETOPOSIDE [Suspect]
     Active Substance: ETOPOSIDE
     Indication: Small cell lung cancer
     Dosage: 60 MILLIGRAM/SQ. METER, CYCLICAL, 2ND CYCLE
     Route: 065
     Dates: start: 201811
  3. ETOPOSIDE [Suspect]
     Active Substance: ETOPOSIDE
     Indication: Small cell lung cancer recurrent
     Dosage: 80 MILLIGRAM/SQ. METER, CYCLICAL, TWO CYCLES
     Route: 065
     Dates: start: 202009
  4. PREDNISOLONE [Suspect]
     Active Substance: PREDNISOLONE
     Indication: Colitis
     Dosage: 40 MILLIGRAM PER DAY
     Route: 048
     Dates: start: 2021, end: 2021
  5. PREDNISOLONE [Suspect]
     Active Substance: PREDNISOLONE
     Indication: Immune-mediated enterocolitis
     Dosage: 80 MILLIGRAM PER DAY
     Route: 048
     Dates: start: 2021, end: 2021
  6. PREDNISOLONE [Suspect]
     Active Substance: PREDNISOLONE
     Dosage: UNK; INCREASED DOSE
     Route: 065
  7. PREDNISOLONE [Suspect]
     Active Substance: PREDNISOLONE
     Dosage: UNK, TAPERED AGGRESSIVELY
     Route: 065
  8. PREDNISOLONE [Suspect]
     Active Substance: PREDNISOLONE
     Dosage: UNK, TAPERED GRADUALLY
     Route: 065
  9. CISPLATIN [Suspect]
     Active Substance: CISPLATIN
     Indication: Small cell lung cancer
     Dosage: 80 MILLIGRAM/SQ. METER
     Route: 065
     Dates: start: 201811
  10. CISPLATIN [Suspect]
     Active Substance: CISPLATIN
     Indication: Metastases to lymph nodes
  11. CARBOPLATIN [Suspect]
     Active Substance: CARBOPLATIN
     Indication: Small cell lung cancer recurrent
     Dosage: UNK, CYCLICAL, TWO CYCLES
     Route: 065
     Dates: start: 202009
  12. CARBOPLATIN [Suspect]
     Active Substance: CARBOPLATIN
     Dosage: UNK, AUC 5
     Route: 065
     Dates: start: 2020
  13. METHYLPREDNISOLONE [Suspect]
     Active Substance: METHYLPREDNISOLONE
     Indication: Colitis
     Dosage: 500 MILLIGRAM PER DAY
     Route: 042
     Dates: start: 2021, end: 2021
  14. METHYLPREDNISOLONE [Suspect]
     Active Substance: METHYLPREDNISOLONE
     Indication: Immune-mediated enterocolitis
  15. ATEZOLIZUMAB [Suspect]
     Active Substance: ATEZOLIZUMAB
     Indication: Small cell lung cancer recurrent
     Dosage: 1200 MILLIGRAM, CYCLICAL, TWO CYCLES
     Route: 065
     Dates: start: 202009
  16. ATEZOLIZUMAB [Suspect]
     Active Substance: ATEZOLIZUMAB
     Dosage: 1200 MILLIGRAM, EVERY 3 WEEKS, FOR MAINTENANCE THERAPY
     Route: 065
     Dates: start: 202012
  17. ATEZOLIZUMAB [Suspect]
     Active Substance: ATEZOLIZUMAB
     Dosage: 1200 MILLIGRAM
     Route: 065
     Dates: start: 2020

REACTIONS (5)
  - Large intestine perforation [Recovered/Resolved]
  - Neutropenia [Unknown]
  - Cytomegalovirus enterocolitis [Recovered/Resolved]
  - Abscess [Unknown]
  - Off label use [Unknown]

NARRATIVE: CASE EVENT DATE: 20210101
